FAERS Safety Report 9223566 (Version 1)
Quarter: 2013Q2

REPORT INFORMATION
  Report Type: Spontaneous
  Country: FR (occurrence: FR)
  Receive Date: 20130410
  Receipt Date: 20130410
  Transmission Date: 20140414
  Serious: Yes (Other)
  Sender: FDA-Public Use
  Company Number: FR-JNJFOC-20130402189

PATIENT
  Age: 56 Year
  Sex: Male

DRUGS (6)
  1. EPITOMAX [Suspect]
     Indication: PARTIAL SEIZURES
     Route: 048
     Dates: start: 2008
  2. PLAVIX [Concomitant]
     Indication: CEREBROVASCULAR ACCIDENT
     Route: 048
     Dates: start: 2008
  3. SEROPLEX [Concomitant]
     Indication: HEADACHE
     Route: 048
     Dates: start: 2008
  4. SEROPLEX [Concomitant]
     Indication: DEPRESSION
     Route: 048
     Dates: start: 2008
  5. PANTOPRAZOLE [Concomitant]
     Indication: ABDOMINAL PAIN UPPER
     Route: 048
     Dates: start: 2008
  6. IXPRIM [Concomitant]
     Indication: HEADACHE
     Route: 065
     Dates: start: 2010

REACTIONS (1)
  - Periarthritis [Recovering/Resolving]
